FAERS Safety Report 13534184 (Version 1)
Quarter: 2017Q2

REPORT INFORMATION
  Report Type: Spontaneous
  Country: GB (occurrence: GB)
  Receive Date: 20170510
  Receipt Date: 20170510
  Transmission Date: 20170830
  Serious: Yes (Other)
  Sender: FDA-Public Use
  Company Number: GB-GILEAD-2017-0271972

PATIENT
  Age: 73 Year
  Sex: Female
  Weight: 68.8 kg

DRUGS (9)
  1. CLOPIDOGREL [Concomitant]
     Active Substance: CLOPIDOGREL BISULFATE
     Route: 048
  2. RAMIPRIL. [Concomitant]
     Active Substance: RAMIPRIL
  3. GLYCERYL TRINITRATE [Concomitant]
     Active Substance: NITROGLYCERIN
     Route: 060
  4. ATENOLOL. [Concomitant]
     Active Substance: ATENOLOL
     Route: 048
  5. RANOLAZINE. [Suspect]
     Active Substance: RANOLAZINE
     Dosage: 375 MG, BID
     Route: 048
     Dates: end: 20170327
  6. RANOLAZINE. [Suspect]
     Active Substance: RANOLAZINE
     Dosage: 375 MG, BID
     Route: 048
     Dates: start: 20170327
  7. ATORVASTATIN [Concomitant]
     Active Substance: ATORVASTATIN
     Indication: ANGINA PECTORIS
     Route: 048
  8. DILTIAZEM. [Concomitant]
     Active Substance: DILTIAZEM
     Indication: ANGINA PECTORIS
     Route: 048
  9. RANOLAZINE. [Suspect]
     Active Substance: RANOLAZINE
     Indication: ANGINA PECTORIS
     Dosage: 500 MG, BID
     Route: 048
     Dates: start: 20170327, end: 20170327

REACTIONS (4)
  - Lip swelling [Recovered/Resolved]
  - Swelling face [Recovered/Resolved]
  - Malaise [Recovered/Resolved]
  - Tinnitus [Recovered/Resolved]

NARRATIVE: CASE EVENT DATE: 20170327
